FAERS Safety Report 6844307-7 (Version None)
Quarter: 2010Q3

REPORT INFORMATION
  Report Type: 
  Country: None (occurrence: None)
  Receive Date: 20100715
  Receipt Date: 20100705
  Transmission Date: 20110219
  Serious: Yes (Death, Hospitalization)
  Sender: FDA-Public Use
  Company Number: TW-ROCHE-713447

PATIENT
  Age: 28 Year
  Sex: Male

DRUGS (8)
  1. AVASTIN [Suspect]
     Indication: COLON CANCER
     Route: 042
     Dates: start: 20050110
  2. OXALIPLATIN [Suspect]
     Indication: COLON CANCER
     Route: 065
     Dates: start: 20050110
  3. FLUOROURACIL [Suspect]
     Indication: COLON CANCER
     Route: 042
     Dates: start: 20050110
  4. LEUCOVORIN CALCIUM [Suspect]
     Indication: COLON CANCER
     Route: 065
     Dates: start: 20050110
  5. DEXAMETHASONE ACETATE [Concomitant]
     Dosage: STAT
     Route: 042
     Dates: start: 20050110
  6. PROCHLORPERAZINE [Concomitant]
     Dosage: STAT; AS NEEDED
     Route: 030
     Dates: start: 20050110
  7. CALCIUM GLUCONATE [Concomitant]
     Dosage: CALCIUM GLUCONATE (10%,10 ML/AMP); STAT
     Route: 042
     Dates: start: 20050110
  8. MAGNESIUM SULFATE [Concomitant]
     Dosage: 10 %; STAT
     Route: 042
     Dates: start: 20050110

REACTIONS (11)
  - ABDOMINAL ABSCESS [None]
  - DIARRHOEA [None]
  - DYSPNOEA [None]
  - HEPATIC FUNCTION ABNORMAL [None]
  - INFECTION [None]
  - INTESTINAL PERFORATION [None]
  - NAUSEA [None]
  - PERITONITIS [None]
  - RENAL IMPAIRMENT [None]
  - THROMBOCYTOPENIA [None]
  - VOMITING [None]
